FAERS Safety Report 9030467 (Version 1)
Quarter: 2013Q1

REPORT INFORMATION
  Report Type: Spontaneous
  Country: US (occurrence: US)
  Receive Date: 20130122
  Receipt Date: 20130122
  Transmission Date: 20140127
  Serious: Yes (Other)
  Sender: FDA-Public Use
  Company Number: US-PFIZER INC-2013024456

PATIENT
  Age: 64 Year
  Sex: Female

DRUGS (3)
  1. PRISTIQ [Suspect]
     Dosage: 50 MG, UNK
  2. KLONOPIN [Concomitant]
     Dosage: UNK
  3. ABILIFY [Concomitant]
     Dosage: UNK

REACTIONS (1)
  - Renal failure [Unknown]
